FAERS Safety Report 20257701 (Version 1)
Quarter: 2021Q4

REPORT INFORMATION
  Report Type: Spontaneous
  Country: FR (occurrence: FR)
  Receive Date: 20211230
  Receipt Date: 20211230
  Transmission Date: 20220303
  Serious: Yes (Hospitalization, Other)
  Sender: FDA-Public Use
  Company Number: None

PATIENT
  Age: 14 Year
  Sex: Female

DRUGS (4)
  1. SERTRALINE HYDROCHLORIDE [Suspect]
     Active Substance: SERTRALINE HYDROCHLORIDE
     Dosage: 4 TABLETS OF 50MG IN ONE INTAKE
     Route: 048
     Dates: start: 20211115, end: 20211115
  2. METHYLPHENIDATE HYDROCHLORIDE [Suspect]
     Active Substance: METHYLPHENIDATE HYDROCHLORIDE
     Dosage: 8 TABLETS OF 20MG IN ONE INTAKE
     Route: 048
     Dates: start: 20211115, end: 20211115
  3. MELATONIN [Suspect]
     Active Substance: MELATONIN
     Indication: Sleep disorder
     Dosage: 4 TABLETS OF 50MG IN ONE INTAKE
     Route: 048
     Dates: start: 20211115, end: 20211115
  4. ATARAX [Suspect]
     Active Substance: HYDROXYZINE HYDROCHLORIDE
     Dosage: 8 TABLETS IN ONE INTAKE
     Route: 048
     Dates: start: 20211115, end: 20211115

REACTIONS (4)
  - Intentional product misuse [Recovering/Resolving]
  - Substance abuse [Recovering/Resolving]
  - Asthenia [Recovering/Resolving]
  - Headache [Recovering/Resolving]

NARRATIVE: CASE EVENT DATE: 20211115
